FAERS Safety Report 6013745-7 (Version None)
Quarter: 2008Q4

REPORT INFORMATION
  Report Type: 
  Country: None (occurrence: None)
  Receive Date: 20081219
  Receipt Date: 20081215
  Transmission Date: 20090506
  Serious: Yes (Hospitalization, Other)
  Sender: FDA-Public Use
  Company Number: B0548232A

PATIENT
  Age: 66 Year
  Sex: Male

DRUGS (2)
  1. MODACIN [Suspect]
     Indication: POSTOPERATIVE FEVER
     Route: 042
     Dates: start: 20080101
  2. GENTAMICIN [Concomitant]
     Indication: POSTOPERATIVE FEVER

REACTIONS (7)
  - ANAEMIA [None]
  - ASCITES [None]
  - DEHYDRATION [None]
  - DIARRHOEA [None]
  - ENTEROCOLITIS [None]
  - PSEUDOMEMBRANOUS COLITIS [None]
  - SHOCK [None]
